FAERS Safety Report 15369370 (Version 1)
Quarter: 2018Q3

REPORT INFORMATION
  Report Type: Spontaneous
  Country: US (occurrence: US)
  Receive Date: 20180911
  Receipt Date: 20180911
  Transmission Date: 20181010
  Serious: No
  Sender: FDA-Public Use
  Company Number: US-GLENMARK PHARMACEUTICALS-2018GMK036378

PATIENT

DRUGS (1)
  1. MUPIROCIN. [Suspect]
     Active Substance: MUPIROCIN
     Indication: RHINITIS
     Dosage: UNK, SINGLE
     Route: 045

REACTIONS (3)
  - Product use in unapproved indication [Unknown]
  - Incorrect route of drug administration [Unknown]
  - No adverse event [Unknown]
